FAERS Safety Report 9587936 (Version 2)
Quarter: 2013Q4

REPORT INFORMATION
  Report Type: Report from Study
  Country: US (occurrence: US)
  Receive Date: 20131003
  Receipt Date: 20131003
  Transmission Date: 20140711
  Serious: Yes (Other)
  Sender: FDA-Public Use
  Company Number: PHEH2012US025637

PATIENT
  Age: 54 Year
  Sex: Female

DRUGS (2)
  1. GLEEVEC [Suspect]
     Indication: NEOPLASM MALIGNANT
     Dosage: 400 MG, QD
     Route: 048
     Dates: start: 20120919
  2. GLEEVEC [Suspect]
     Dosage: 400 MG, QD
     Route: 048
     Dates: start: 20130920

REACTIONS (6)
  - Gait disturbance [Recovering/Resolving]
  - Blood potassium decreased [Recovering/Resolving]
  - Vision blurred [Recovering/Resolving]
  - Blepharitis [Not Recovered/Not Resolved]
  - Eye swelling [Not Recovered/Not Resolved]
  - Abdominal distension [Recovering/Resolving]
